FAERS Safety Report 4347846-6 (Version None)
Quarter: 2004Q2

REPORT INFORMATION
  Report Type: 
  Country: None (occurrence: None)
  Receive Date: 20040422
  Receipt Date: 20040401
  Transmission Date: 20050107
  Serious: Yes (Hospitalization, Other)
  Sender: FDA-Public Use
  Company Number: USA040361962

PATIENT
  Age: 85 Year
  Sex: Female
  Weight: 61 kg

DRUGS (10)
  1. EVISTA [Suspect]
     Indication: OSTEOPOROSIS PROPHYLAXIS
     Dosage: 60 MG/1 DAY
     Dates: start: 20000927
  2. ARICEPT [Concomitant]
  3. VITAMIN E [Concomitant]
  4. LOTENSIN [Concomitant]
  5. HCT (HYDROCHLOROTHIAZIDE) [Concomitant]
  6. NORVASC [Concomitant]
  7. ASPIRIN 10GR TIMED DISINTEGRATION TAB [Concomitant]
  8. ZOLOFT [Concomitant]
  9. BUSPAR [Concomitant]
  10. RANITIDINE [Concomitant]

REACTIONS (2)
  - DEEP VEIN THROMBOSIS [None]
  - HIP FRACTURE [None]
